FAERS Safety Report 6746061-6 (Version None)
Quarter: 2010Q2

REPORT INFORMATION
  Report Type: 
  Country: None (occurrence: None)
  Receive Date: 20100528
  Receipt Date: 20100524
  Transmission Date: 20101027
  Serious: Yes (Death, Congenital Anomaly)
  Sender: FDA-Public Use
  Company Number: CA-ABBOTT-10P-028-0633619-00

PATIENT

DRUGS (1)
  1. HUMIRA [Suspect]
     Indication: DRUG EXPOSURE DURING PREGNANCY
     Route: 064

REACTIONS (5)
  - CONGENITAL INTESTINAL MALFORMATION [None]
  - CYTOGENETIC ABNORMALITY [None]
  - DRUG EXPOSURE DURING PREGNANCY [None]
  - EXOMPHALOS [None]
  - ULTRASOUND ANTENATAL SCREEN [None]
